FAERS Safety Report 5677422-4 (Version None)
Quarter: 2008Q1

REPORT INFORMATION
  Report Type: 
  Country: None (occurrence: None)
  Receive Date: 20080324
  Receipt Date: 20080319
  Transmission Date: 20080703
  Serious: Yes (Hospitalization)
  Sender: FDA-Public Use
  Company Number: US-BRISTOL-MYERS SQUIBB COMPANY-14120364

PATIENT
  Age: 54 Year
  Sex: Male
  Weight: 59 kg

DRUGS (12)
  1. CETUXIMAB [Suspect]
     Indication: SQUAMOUS CELL CARCINOMA
     Dosage: FIRST CYCLE 0N 3MAR08 AND ENDING 18MAR08.
     Dates: start: 20080304
  2. CISPLATIN [Suspect]
     Indication: SQUAMOUS CELL CARCINOMA
     Dates: start: 20080304
  3. TAXOTERE [Suspect]
     Indication: SQUAMOUS CELL CARCINOMA
     Dates: start: 20080304
  4. FLUOROURACIL [Suspect]
     Indication: SQUAMOUS CELL CARCINOMA
     Dates: start: 20080304
  5. DIFLUCAN [Concomitant]
  6. POTASSIUM CHLORIDE [Concomitant]
  7. NYSTATIN [Concomitant]
  8. OXYCODONE HCL [Concomitant]
  9. OXYCONTIN [Concomitant]
  10. REGLAN [Concomitant]
  11. FAMVIR [Concomitant]
  12. LEVOFLOXACIN [Concomitant]

REACTIONS (3)
  - CELLULITIS [None]
  - OEDEMA PERIPHERAL [None]
  - PAIN IN EXTREMITY [None]
